FAERS Safety Report 19895296 (Version 1)
Quarter: 2021Q3

REPORT INFORMATION
  Report Type: Spontaneous
  Country: US (occurrence: US)
  Receive Date: 20210929
  Receipt Date: 20210929
  Transmission Date: 20211014
  Serious: No
  Sender: FDA-Public Use
  Company Number: US-SAREPTA THERAPEUTICS INC.-SRP2021-001238

PATIENT
  Age: 18 Year
  Sex: Male
  Weight: 35.19 kg

DRUGS (29)
  1. NEURONTIN [Concomitant]
     Active Substance: GABAPENTIN
     Indication: PRODUCT USED FOR UNKNOWN INDICATION
     Dosage: 300 MILLIGRAM, TID
     Route: 065
  2. ENULOSE [Concomitant]
     Active Substance: LACTULOSE
     Indication: CONSTIPATION
     Dosage: 30 MILLILITER, BID
     Route: 048
     Dates: start: 20180610
  3. COZAAR [Concomitant]
     Active Substance: LOSARTAN POTASSIUM
     Indication: COUGH
     Dosage: 25 MILLIGRAM, QD, NIGHTLY
     Route: 048
     Dates: start: 20170210
  4. MELATONIN [Concomitant]
     Active Substance: MELATONIN
     Indication: PRODUCT USED FOR UNKNOWN INDICATION
     Dosage: 3 MILLIGRAM, QD
     Route: 065
  5. VITAMIN K2 +VITAMIN D3 +CALCIUM [Concomitant]
     Active Substance: CALCIUM\MENAQUINONE 6\VITAMIN D
     Indication: PRODUCT USED FOR UNKNOWN INDICATION
     Dosage: 500?1000?40, QD, 1 TABLET
     Route: 048
  6. LIDOCAINE. [Concomitant]
     Active Substance: LIDOCAINE
     Indication: PRODUCT USED FOR UNKNOWN INDICATION
     Dosage: ONCE, QD
     Route: 061
  7. SENNA S [Concomitant]
     Active Substance: DOCUSATE SODIUM\SENNA LEAF
     Indication: CONSTIPATION
     Dosage: 8.6 MILLIGRAM, QD, AS NEEDED
     Route: 048
     Dates: start: 20190109
  8. TROKENDI XR [Concomitant]
     Active Substance: TOPIRAMATE
     Dosage: 25 MILLIGRAM QID
     Route: 048
     Dates: start: 20210411
  9. EXONDYS 51 [Suspect]
     Active Substance: ETEPLIRSEN
     Dosage: 1100 MILLIGRAM, WEEKLY
     Route: 042
     Dates: start: 20201230
  10. KLONOPIN [Concomitant]
     Active Substance: CLONAZEPAM
     Indication: SEIZURE CLUSTER
     Dosage: 0.25 MILLIGRAM, AS NEEDED
     Route: 048
     Dates: start: 20171031
  11. DIASTAT ACUDIAL [Concomitant]
     Active Substance: DIAZEPAM
     Indication: SEIZURE
     Dosage: 7.5 MILLIGRAM, PRN
     Route: 054
  12. ZARONTIN [Concomitant]
     Active Substance: ETHOSUXIMIDE
     Indication: PETIT MAL EPILEPSY
     Dosage: TAKE 5 ML IN THE MORNING AND 10 ML IN THE AFTERNOON
     Route: 048
     Dates: start: 20170620
  13. PROTONIX [Concomitant]
     Active Substance: PANTOPRAZOLE SODIUM
     Indication: GASTROOESOPHAGEAL REFLUX DISEASE
     Dosage: 1 TABLET, BID
     Route: 048
     Dates: start: 20190410
  14. CANNABIDIOL [Concomitant]
     Active Substance: CANNABIDIOL
     Indication: PAIN MANAGEMENT
     Dosage: 80 MILLIGRAM, BID
     Route: 048
     Dates: start: 20190929
  15. ONFI [Concomitant]
     Active Substance: CLOBAZAM
     Indication: SEIZURE
     Dosage: 6 MILLILITER, BID
     Route: 048
     Dates: start: 20210222
  16. LAMICTAL XR [Concomitant]
     Active Substance: LAMOTRIGINE
     Indication: SEIZURE
     Dosage: 100 MILLIGRAM, BID
     Route: 048
     Dates: start: 20180515
  17. LAMICTAL XR [Concomitant]
     Active Substance: LAMOTRIGINE
     Dosage: 200 MILLIGRAM, BID
     Route: 048
  18. MIRALAX [Concomitant]
     Active Substance: POLYETHYLENE GLYCOL 3350
     Indication: PRODUCT USED FOR UNKNOWN INDICATION
     Dosage: 17 GRAM, DAILY
     Route: 065
  19. VALISONE [Concomitant]
     Active Substance: BETAMETHASONE VALERATE
     Indication: PENILE ADHESION
     Dosage: 15 GRAM, BID
     Route: 061
     Dates: start: 20190823
  20. DELTASONE [Concomitant]
     Active Substance: PREDNISONE
     Indication: PRODUCT USED FOR UNKNOWN INDICATION
     Dosage: 40 MILLIGRAM, Q SAT AND SUN
     Route: 065
  21. TROKENDI XR [Concomitant]
     Active Substance: TOPIRAMATE
     Indication: SEIZURE
     Dosage: 25 MILLIGRAM, QID
     Route: 048
     Dates: start: 20190410
  22. FLEXERIL [Concomitant]
     Active Substance: CYCLOBENZAPRINE HYDROCHLORIDE
     Indication: MUSCLE SPASMS
     Dosage: 5 MILLIGRAM, AS NEEDED 3 TIMES A DAY
     Route: 048
     Dates: start: 20201105
  23. EXONDYS 51 [Suspect]
     Active Substance: ETEPLIRSEN
     Indication: DUCHENNE MUSCULAR DYSTROPHY
     Dosage: 1100 MILLIGRAM, WEEKLY
     Route: 042
     Dates: start: 20180131, end: 20201217
  24. NEXIUM I.V. [Concomitant]
     Active Substance: ESOMEPRAZOLE SODIUM
     Indication: PRODUCT USED FOR UNKNOWN INDICATION
     Dosage: 40 MILLIGRAM, QD
     Route: 065
  25. DIAZEPAM. [Concomitant]
     Active Substance: DIAZEPAM
     Indication: MUSCLE SPASMS
     Dosage: 7.5 MILLIGRAM, PRN
     Route: 054
     Dates: start: 20170210
  26. CANNABIDIOL [Concomitant]
     Active Substance: CANNABIDIOL
     Indication: SEIZURE
     Dosage: 0.8 MILLILITER, BID
     Route: 048
     Dates: start: 20190904
  27. VITAMIN B6 [Concomitant]
     Active Substance: PYRIDOXINE HYDROCHLORIDE
     Indication: ROUTINE HEALTH MAINTENANCE
     Dosage: 100 MILLIGRAM, BID
     Route: 048
     Dates: start: 20170508
  28. PYRIDOXINE [Concomitant]
     Active Substance: PYRIDOXINE
     Indication: PRODUCT USED FOR UNKNOWN INDICATION
     Dosage: 100 MILLIGRAM, BID
     Route: 065
  29. ROXICODONE [Concomitant]
     Active Substance: OXYCODONE HYDROCHLORIDE
     Indication: PAIN
     Dosage: 2.5?5 MG EVERY 6 HOURS, AS NEEDED
     Route: 048
     Dates: start: 20180614

REACTIONS (2)
  - Malaise [Unknown]
  - Intentional dose omission [Recovered/Resolved]

NARRATIVE: CASE EVENT DATE: 202012
